FAERS Safety Report 21373827 (Version 1)
Quarter: 2022Q3

REPORT INFORMATION
  Report Type: Report from Study
  Country: BR (occurrence: BR)
  Receive Date: 20220926
  Receipt Date: 20220926
  Transmission Date: 20221027
  Serious: Yes (Other)
  Sender: FDA-Public Use
  Company Number: BR-ABBVIE-4129211

PATIENT
  Age: 78 Year
  Sex: Female
  Weight: 82 kg

DRUGS (1)
  1. RINVOQ [Suspect]
     Active Substance: UPADACITINIB
     Indication: Rheumatoid arthritis
     Route: 048

REACTIONS (3)
  - Cataract [Recovering/Resolving]
  - Finger deformity [Unknown]
  - Heart valve calcification [Not Recovered/Not Resolved]

NARRATIVE: CASE EVENT DATE: 20220409
